FAERS Safety Report 4378070-9 (Version None)
Quarter: 2004Q2

REPORT INFORMATION
  Report Type: 
  Country: None (occurrence: None)
  Receive Date: 20040616
  Receipt Date: 20040302
  Transmission Date: 20050107
  Serious: Yes (Hospitalization, Other)
  Sender: FDA-Public Use
  Company Number: US-BRISTOL-MYERS SQUIBB COMPANY-12521639

PATIENT
  Age: 64 Year
  Sex: Male
  Weight: 77 kg

DRUGS (9)
  1. CISPLATIN [Suspect]
     Indication: MESOTHELIOMA
     Dosage: INITIAL DOSE: 21-OCT-2003
     Route: 042
     Dates: start: 20040113, end: 20040113
  2. PEMETREXED DISODIUM [Suspect]
     Indication: MESOTHELIOMA
     Dosage: INITIAL DOSE: 21-OCT-2003
     Route: 042
     Dates: start: 20040113, end: 20040113
  3. COUMADIN [Concomitant]
     Indication: THROMBOSIS PROPHYLAXIS
     Dates: start: 20040904
  4. FOLIC ACID [Concomitant]
     Indication: VITAMIN SUPPLEMENTATION
     Dates: start: 20031013
  5. VICODIN [Concomitant]
     Indication: PAIN
     Dates: start: 20031111
  6. DURAGESIC [Concomitant]
     Indication: PAIN
     Dates: start: 20031202
  7. COMPAZINE [Concomitant]
     Indication: PROPHYLAXIS OF NAUSEA AND VOMITING
     Dates: start: 20031224
  8. ANZEMET [Concomitant]
     Indication: PROPHYLAXIS OF NAUSEA AND VOMITING
     Dates: start: 20040122
  9. ARANESP [Concomitant]
     Indication: ANAEMIA
     Dates: start: 20031111

REACTIONS (3)
  - CONVULSION [None]
  - MENTAL STATUS CHANGES [None]
  - PANCYTOPENIA [None]
